FAERS Safety Report 15403080 (Version 1)
Quarter: 2018Q3

REPORT INFORMATION
  Report Type: Spontaneous
  Country: DK (occurrence: DK)
  Receive Date: 20180919
  Receipt Date: 20180919
  Transmission Date: 20181010
  Serious: Yes (Life-Threatening, Other)
  Sender: FDA-Public Use
  Company Number: DK-SA-2018SA258859

PATIENT
  Age: 56 Year
  Sex: Female

DRUGS (1)
  1. AUBAGIO [Suspect]
     Active Substance: TERIFLUNOMIDE
     Indication: MULTIPLE SCLEROSIS
     Dosage: 14 MG, QD
     Route: 048
     Dates: start: 20180622, end: 20180820

REACTIONS (4)
  - Endotracheal intubation [Recovered/Resolved]
  - Cardiac arrest [Recovered/Resolved]
  - Bundle branch block left [Recovered/Resolved]
  - Somnolence [Recovering/Resolving]

NARRATIVE: CASE EVENT DATE: 20180820
